FAERS Safety Report 10860501 (Version 1)
Quarter: 2015Q1

REPORT INFORMATION
  Report Type: Spontaneous
  Country: CA (occurrence: CA)
  Receive Date: 20150223
  Receipt Date: 20150223
  Transmission Date: 20150721
  Serious: No
  Sender: FDA-Public Use
  Company Number: CA-B.I. PHARMACEUTICALS,INC./RIDGEFIELD-2015-BI-07284BP

PATIENT
  Age: 77 Year
  Sex: Male
  Weight: 105.23 kg

DRUGS (8)
  1. SANDOZ-RABEPRAZOLE [Concomitant]
     Indication: BARRETT^S OESOPHAGUS
     Dosage: 20 MG
     Route: 048
     Dates: start: 2005
  2. MAR-ALLOPURINOL [Concomitant]
     Indication: GOUT
     Dosage: 200 MG
     Route: 048
     Dates: start: 2005
  3. SANDOZ-CANDESARTAN PLUS [Concomitant]
     Indication: HYPERTENSION
     Dosage: STRENGTH: 16/12.5 MG; DAILY DOSE: 16/12.5 MG
     Route: 048
     Dates: start: 2000
  4. GILOTRIF [Suspect]
     Active Substance: AFATINIB
     Indication: LYMPHOMA
  5. SANDOZ-BISOPROLOL [Concomitant]
     Indication: HYPERTENSION
     Dosage: 5 MG
     Route: 048
     Dates: start: 2000
  6. ASPIRIN. [Concomitant]
     Active Substance: ASPIRIN
     Indication: CEREBROVASCULAR ACCIDENT PROPHYLAXIS
     Dosage: 81 MG
     Route: 048
     Dates: start: 2005
  7. GILOTRIF [Suspect]
     Active Substance: AFATINIB
     Indication: LUNG NEOPLASM MALIGNANT
     Dosage: 40 MG
     Route: 048
     Dates: start: 20150208
  8. SANDOZ-TAMSULOSIN [Concomitant]
     Indication: PROSTATIC DISORDER
     Dosage: 0.4 MG
     Route: 048
     Dates: start: 2013

REACTIONS (4)
  - Flatulence [Recovered/Resolved]
  - Faeces soft [Recovered/Resolved]
  - Diarrhoea [Recovered/Resolved]
  - Abdominal pain upper [Recovered/Resolved]

NARRATIVE: CASE EVENT DATE: 20150209
